FAERS Safety Report 19270213 (Version 1)
Quarter: 2021Q2

REPORT INFORMATION
  Report Type: Spontaneous
  Country: US (occurrence: US)
  Receive Date: 20210518
  Receipt Date: 20210518
  Transmission Date: 20210717
  Serious: Yes (Hospitalization, Disabling)
  Sender: FDA-Public Use
  Company Number: None

PATIENT
  Age: 60 Year
  Sex: Female
  Weight: 180 kg

DRUGS (18)
  1. ASPIRIN. [Concomitant]
     Active Substance: ASPIRIN
  2. MULTIVITAMIN [Concomitant]
     Active Substance: VITAMINS
  3. KEYTRUDA [Suspect]
     Active Substance: PEMBROLIZUMAB
     Indication: NODULAR MELANOMA
  4. OXYBUTYNIN. [Concomitant]
     Active Substance: OXYBUTYNIN CHLORIDE
  5. AMLODIPINE [Concomitant]
     Active Substance: AMLODIPINE BESYLATE
  6. LOSARTAN. [Concomitant]
     Active Substance: LOSARTAN
  7. LAMOTRIGINE. [Concomitant]
     Active Substance: LAMOTRIGINE
  8. VITAMIN B12 [Concomitant]
     Active Substance: CYANOCOBALAMIN
  9. VITAMIN D3 [Concomitant]
     Active Substance: CHOLECALCIFEROL
  10. METOPROLOL. [Concomitant]
     Active Substance: METOPROLOL
  11. SPIRONOLACTONE. [Concomitant]
     Active Substance: SPIRONOLACTONE
  12. TRULICITY [Concomitant]
     Active Substance: DULAGLUTIDE
  13. ABILIFY [Concomitant]
     Active Substance: ARIPIPRAZOLE
  14. ASPIRIN. [Concomitant]
     Active Substance: ASPIRIN
  15. REMERON [Concomitant]
     Active Substance: MIRTAZAPINE
  16. BUSPIRONE [Concomitant]
     Active Substance: BUSPIRONE HYDROCHLORIDE
  17. CELLCEPT [Concomitant]
     Active Substance: MYCOPHENOLATE MOFETIL\MYCOPHENOLATE MOFETIL HYDROCHLORIDE
  18. SYNTHROID [Concomitant]
     Active Substance: LEVOTHYROXINE SODIUM

REACTIONS (2)
  - Optic nerve disorder [None]
  - Blindness [None]

NARRATIVE: CASE EVENT DATE: 20201001
